FAERS Safety Report 4721200-7 (Version None)
Quarter: 2005Q3

REPORT INFORMATION
  Report Type: 
  Country: None (occurrence: None)
  Receive Date: 20050722
  Receipt Date: 20050719
  Transmission Date: 20060218
  Serious: Yes (Other)
  Sender: FDA-Public Use
  Company Number: JP-RB-1889-2005

PATIENT
  Sex: Female

DRUGS (13)
  1. BUPRENORPHINE HCL [Suspect]
     Indication: PAIN
     Route: 054
     Dates: start: 20050325, end: 20050612
  2. ASPIRIN [Concomitant]
     Indication: MYOCARDIAL INFARCTION
     Route: 048
     Dates: end: 20050612
  3. TICLOPIDINE HYDROCHLORIDE [Concomitant]
     Indication: MYOCARDIAL INFARCTION
     Route: 048
     Dates: end: 20050612
  4. BUCILLAMINE [Concomitant]
     Indication: RHEUMATOID ARTHRITIS
     Route: 048
  5. PREDNISOLONE [Concomitant]
     Indication: RHEUMATOID ARTHRITIS
     Route: 048
  6. LANSOPRAZOLE [Concomitant]
     Indication: REFLUX OESOPHAGITIS
     Route: 048
  7. MAGNESIUM OXIDE [Concomitant]
     Indication: CONSTIPATION
     Route: 048
  8. TEPRENONE [Concomitant]
     Indication: CONSTIPATION
     Route: 048
  9. SODIUM BICARBONATE [Concomitant]
     Indication: CONSTIPATION
     Route: 048
  10. ATORVASTATIN CALCIUM [Concomitant]
     Indication: HYPERLIPIDAEMIA
     Route: 048
  11. ETODOLAC [Concomitant]
     Indication: PAIN
     Route: 048
     Dates: end: 20050612
  12. NICORANDIL [Concomitant]
     Indication: MYOCARDIAL INFARCTION
     Route: 048
  13. SENNOSIDE B [Concomitant]
     Indication: CONSTIPATION
     Route: 048

REACTIONS (2)
  - RECTAL ULCER [None]
  - RECTAL ULCER HAEMORRHAGE [None]
